FAERS Safety Report 14574803 (Version 1)
Quarter: 2018Q1

REPORT INFORMATION
  Report Type: Spontaneous
  Country: US (occurrence: US)
  Receive Date: 20180227
  Receipt Date: 20180227
  Transmission Date: 20180509
  Serious: No
  Sender: FDA-Public Use
  Company Number: US-ROCHE-1983774

PATIENT
  Age: 11 Year
  Sex: Male

DRUGS (2)
  1. XOLAIR [Suspect]
     Active Substance: OMALIZUMAB
     Indication: DRUG HYPERSENSITIVITY
     Route: 065
     Dates: start: 20170410
  2. ALPHANATE [Concomitant]
     Active Substance: HUMAN COAGULATION FACTOR VIII/VON WILLEBRAND FACTOR COMPLEX
     Indication: FACTOR VIII DEFICIENCY
     Dosage: ONGOING
     Route: 065
     Dates: start: 201704

REACTIONS (3)
  - Intentional product use issue [Unknown]
  - Off label use [Unknown]
  - Pain [Unknown]
